FAERS Safety Report 4974866-0 (Version None)
Quarter: 2006Q1

REPORT INFORMATION
  Report Type: 
  Country: None (occurrence: None)
  Receive Date: 20060227
  Receipt Date: 20060116
  Transmission Date: 20060701
  Serious: No
  Sender: FDA-Public Use
  Company Number: PHEH2006US01007

PATIENT
  Sex: Male

DRUGS (8)
  1. ENABLEX [Suspect]
     Indication: HYPERTONIC BLADDER
     Dosage: 7.5 MG, QD,
  2. ATENOLOL [Concomitant]
  3. LIPITOR /NET/ [Concomitant]
  4. ATORVASTATIN CALCIUM [Concomitant]
  5. METFORMIN [Concomitant]
  6. AVALIDE [Concomitant]
  7. ACIPHEX [Concomitant]
  8. COUMADIN [Concomitant]

REACTIONS (1)
  - DRY MOUTH [None]
